FAERS Safety Report 4522265-8 (Version None)
Quarter: 2004Q4

REPORT INFORMATION
  Report Type: 
  Country: None (occurrence: None)
  Receive Date: 20041207
  Receipt Date: 20041124
  Transmission Date: 20050328
  Serious: Yes (Other)
  Sender: FDA-Public Use
  Company Number: 2004094657

PATIENT
  Age: 33 Year
  Sex: Female
  Weight: 48.0813 kg

DRUGS (2)
  1. DEPO-PROVERA [Suspect]
     Indication: CONTRACEPTION
     Dosage: 150 MG (150 MG, 1ST  INJ., EVERY 10-13 WEEKS), INTRAMUSCULAR
     Route: 030
     Dates: start: 20041115, end: 20041115
  2. LEVOTHYROXINE SODIUM [Concomitant]

REACTIONS (11)
  - CHEST DISCOMFORT [None]
  - DIZZINESS [None]
  - DRUG HYPERSENSITIVITY [None]
  - EYE SWELLING [None]
  - HYPOAESTHESIA [None]
  - MIGRAINE [None]
  - PRURITUS [None]
  - RASH [None]
  - STRESS SYMPTOMS [None]
  - SWELLING FACE [None]
  - THYROID DISORDER [None]
